FAERS Safety Report 9450617 (Version 1)
Quarter: 2013Q3

REPORT INFORMATION
  Report Type: Spontaneous
  Country: US (occurrence: US)
  Receive Date: 20130809
  Receipt Date: 20130809
  Transmission Date: 20140515
  Serious: No
  Sender: FDA-Public Use
  Company Number: US-009507513-1308USA003055

PATIENT
  Sex: Female

DRUGS (3)
  1. MIRALAX [Suspect]
     Indication: CONSTIPATION
     Dosage: 17 G, ONCE
     Route: 048
     Dates: start: 20130801
  2. MIRALAX [Suspect]
     Indication: MEDICAL OBSERVATION
     Dosage: 34 G, UNKNOWN
     Route: 048
     Dates: start: 20130802
  3. MIRALAX [Suspect]
     Dosage: 17 G, QD
     Route: 048
     Dates: start: 20130803, end: 20130804

REACTIONS (2)
  - Overdose [Unknown]
  - Drug ineffective [Unknown]
